FAERS Safety Report 7355102-7 (Version None)
Quarter: 2011Q1

REPORT INFORMATION
  Report Type: 
  Country: None (occurrence: None)
  Receive Date: 20110316
  Receipt Date: 20110316
  Transmission Date: 20110831
  Serious: Yes (Other)
  Sender: FDA-Public Use
  Company Number: None

PATIENT
  Sex: Female

DRUGS (1)
  1. IV PREP ANTISEPTIC WIPES SMITH + NEPHEW [Suspect]
     Indication: DIABETES MELLITUS
     Dosage: USES TO CLEAN IV SITES
     Route: 042

REACTIONS (4)
  - PRODUCT QUALITY ISSUE [None]
  - INJECTION SITE SCAR [None]
  - TRANSMISSION OF AN INFECTIOUS AGENT VIA A MEDICINAL PRODUCT [None]
  - INJECTION SITE INFECTION [None]
